FAERS Safety Report 6195309-8 (Version None)
Quarter: 2009Q2

REPORT INFORMATION
  Report Type: 
  Country: None (occurrence: None)
  Receive Date: 20090519
  Receipt Date: 20090512
  Transmission Date: 20091009
  Serious: Yes (Other)
  Sender: FDA-Public Use
  Company Number: US-ELI_LILLY_AND_COMPANY-US200905002395

PATIENT
  Sex: Female

DRUGS (8)
  1. HUMALOG [Suspect]
     Indication: TYPE 1 DIABETES MELLITUS
     Dosage: UNK, AS NEEDED
     Dates: start: 20020101
  2. HUMALOG [Suspect]
     Dosage: UNK, AS NEEDED
     Dates: start: 20020101
  3. FUROSEMIDE [Concomitant]
  4. ENALAPRIL [Concomitant]
  5. METOPROLOL [Concomitant]
  6. KLOR-CON [Concomitant]
  7. WARFARIN SODIUM [Concomitant]
  8. LANTUS [Concomitant]
     Indication: BLOOD GLUCOSE FLUCTUATION

REACTIONS (3)
  - BLINDNESS UNILATERAL [None]
  - GLAUCOMA [None]
  - VISUAL ACUITY REDUCED [None]
